FAERS Safety Report 9260725 (Version 1)
Quarter: 2013Q2

REPORT INFORMATION
  Report Type: Spontaneous
  Country: FR (occurrence: FR)
  Receive Date: 20130429
  Receipt Date: 20130429
  Transmission Date: 20140414
  Serious: Yes (Life-Threatening, Hospitalization, Other)
  Sender: FDA-Public Use
  Company Number: FR-ELI_LILLY_AND_COMPANY-FR201304006573

PATIENT
  Age: 69 Year
  Sex: Male

DRUGS (2)
  1. GEMZAR [Suspect]
     Indication: BLADDER CANCER
     Dosage: UNK
     Route: 042
     Dates: start: 20121102, end: 20121102
  2. CISPLATIN [Concomitant]
     Indication: BLADDER CANCER
     Dosage: UNK
     Route: 042
     Dates: start: 20121102, end: 20121102

REACTIONS (2)
  - Myocardial infarction [Recovered/Resolved]
  - Atrioventricular block complete [Recovered/Resolved]
